FAERS Safety Report 5688730-5 (Version None)
Quarter: 2008Q1

REPORT INFORMATION
  Report Type: 
  Country: None (occurrence: None)
  Receive Date: 20080331
  Receipt Date: 20080317
  Transmission Date: 20080703
  Serious: Yes (Other)
  Sender: FDA-Public Use
  Company Number: NL-MERCK-0803NLD00021

PATIENT
  Age: 50 Year
  Sex: Male

DRUGS (7)
  1. PRINIVIL [Suspect]
     Route: 048
     Dates: start: 20070101
  2. DIDANOSINE [Concomitant]
     Route: 065
     Dates: start: 20070101, end: 20071001
  3. NIFEDIPINE [Concomitant]
     Route: 065
     Dates: start: 20070101
  4. TENOFOVIR [Concomitant]
     Route: 065
     Dates: start: 20070101
  5. LAMIVUDINE [Concomitant]
     Route: 065
     Dates: start: 20070101
  6. LOPINAVIR AND RITONAVIR [Concomitant]
     Route: 065
     Dates: start: 20070101
  7. NEVIRAPINE [Concomitant]
     Route: 065
     Dates: start: 20070101

REACTIONS (4)
  - FOCAL NODULAR HYPERPLASIA [None]
  - HEPATIC FAILURE [None]
  - OESOPHAGEAL VARICES HAEMORRHAGE [None]
  - PORTAL HYPERTENSION [None]
